FAERS Safety Report 8208804 (Version 3)
Quarter: 2012Q4

REPORT INFORMATION
  Report Type: 
  Country: GB (occurrence: GB)
  Receive Date: 20111028
  Receipt Date: 20120905
  Transmission Date: 20130627
  Serious: Yes (Hospitalization)
  Sender: FDA-Public Use
  Company Number: PHHY2011GB91888

PATIENT
  Age: 37 Year
  Sex: Male

DRUGS (3)
  1. DICLOFENAC [Suspect]
     Indication: BACK PAIN
     Dosage: 50 mg, TID
     Route: 048
     Dates: start: 20090501, end: 20110930
  2. IBUPROFEN [Suspect]
     Indication: BACK PAIN
     Dosage: 400 mg, TID
     Route: 048
     Dates: start: 20110601, end: 20110930
  3. AMITRIPTYLINE [Concomitant]

REACTIONS (7)
  - Duodenitis [Recovering/Resolving]
  - Helicobacter test positive [Unknown]
  - Gastritis [Recovering/Resolving]
  - Abdominal pain [Recovering/Resolving]
  - Abdominal pain upper [Recovering/Resolving]
  - Peptic ulcer [Recovering/Resolving]
  - Melaena [Recovering/Resolving]
